FAERS Safety Report 13135195 (Version 6)
Quarter: 2019Q3

REPORT INFORMATION
  Report Type: Report from Study
  Country: DE (occurrence: DE)
  Receive Date: 20170120
  Receipt Date: 20190910
  Transmission Date: 20191004
  Serious: Yes (Hospitalization)
  Sender: FDA-Public Use
  Company Number: DE-TAKEDA-2017TUS001199

PATIENT
  Age: 51 Year
  Sex: Male
  Weight: 74 kg

DRUGS (7)
  1. VEDOLIZUMAB [Suspect]
     Active Substance: VEDOLIZUMAB
     Dosage: 300 MILLIGRAM
     Route: 042
     Dates: start: 20170719
  2. MUTAFLOR [Concomitant]
     Active Substance: ESCHERICHIA COLI
     Indication: COLITIS ULCERATIVE
     Dosage: UNK, QD
     Dates: start: 2014
  3. DALTEPARIN [Concomitant]
     Active Substance: DALTEPARIN
     Dosage: 0.2 MILLIGRAM, QD
     Dates: end: 20190302
  4. METAMIZOLE [Concomitant]
     Active Substance: METAMIZOLE
     Indication: PAIN
     Dosage: 500 MILLIGRAM
     Dates: start: 20190222
  5. METAMIZOLE [Concomitant]
     Active Substance: METAMIZOLE
     Dosage: 1000 MILLIGRAM
     Dates: start: 20190319
  6. PANTOPRAZOLE [Concomitant]
     Active Substance: PANTOPRAZOLE
     Indication: ABDOMINAL PAIN UPPER
     Dosage: 40 MILLIGRAM, QD
  7. VEDOLIZUMAB [Suspect]
     Active Substance: VEDOLIZUMAB
     Indication: COLITIS ULCERATIVE
     Dosage: 300 MILLIGRAM
     Route: 042
     Dates: start: 20160425, end: 20161213

REACTIONS (11)
  - Stoma creation [Unknown]
  - Stomal hernia [Recovered/Resolved]
  - Colectomy [Unknown]
  - Product use issue [Unknown]
  - Intestinal polyp [Recovered/Resolved]
  - Rectal neoplasm [Recovering/Resolving]
  - Fluid retention [Unknown]
  - Abdominal pain [Recovered/Resolved]
  - Pseudopolyp [Unknown]
  - Colitis ulcerative [Not Recovered/Not Resolved]
  - Proctocolectomy [Unknown]

NARRATIVE: CASE EVENT DATE: 20161025
